FAERS Safety Report 9038887 (Version 1)
Quarter: 2013Q1

REPORT INFORMATION
  Report Type: Spontaneous
  Country: US (occurrence: None)
  Receive Date: 20130123
  Receipt Date: 20130123
  Transmission Date: 20140127
  Serious: Yes (Disabling)
  Sender: FDA-Public Use
  Company Number: None

PATIENT
  Sex: Female
  Weight: 62.6 kg

DRUGS (2)
  1. KLOR-CON [Suspect]
  2. POTASSIUM CHLORIDE [Suspect]

REACTIONS (5)
  - Musculoskeletal pain [None]
  - Neck pain [None]
  - Headache [None]
  - Toothache [None]
  - Arthropathy [None]
